FAERS Safety Report 9889092 (Version 1)
Quarter: 2014Q1

REPORT INFORMATION
  Report Type: Spontaneous
  Country: US (occurrence: US)
  Receive Date: 20140211
  Receipt Date: 20140211
  Transmission Date: 20141002
  Serious: Yes (Death, Hospitalization, Other)
  Sender: FDA-Public Use
  Company Number: US-009507513-1401USA014886

PATIENT
  Age: 45 Year
  Sex: Male

DRUGS (22)
  1. CLARITIN [Suspect]
     Indication: PRURITUS
     Dosage: UNK
     Route: 048
     Dates: start: 201308
  2. LISINOPRIL [Concomitant]
     Indication: PRODUCT USED FOR UNKNOWN INDICATION
     Dosage: UNK
     Route: 048
  3. HUMULIN N [Concomitant]
     Indication: PRODUCT USED FOR UNKNOWN INDICATION
     Dosage: UNK UNK, BID
     Route: 058
  4. LOVENOX [Concomitant]
     Indication: PRODUCT USED FOR UNKNOWN INDICATION
     Route: 058
  5. PRAVASTATIN SODIUM [Concomitant]
     Indication: PRODUCT USED FOR UNKNOWN INDICATION
     Route: 048
  6. INSULIN LISPRO [Concomitant]
     Indication: DIABETES MELLITUS
     Dosage: UNK UNK, TID
     Route: 058
  7. BISACODYL [Concomitant]
     Route: 054
  8. NOVOLIN [Concomitant]
     Indication: PRODUCT USED FOR UNKNOWN INDICATION
     Dosage: UNK, QAM
     Route: 058
  9. NOVOLIN [Concomitant]
     Indication: DIABETES MELLITUS
     Dosage: UNK, QD
     Route: 058
  10. GLUCAGEN [Concomitant]
     Route: 030
  11. MAGNESIA [MILK OF] [Concomitant]
     Indication: PRODUCT USED FOR UNKNOWN INDICATION
     Route: 048
  12. ONDANSETRON [Concomitant]
     Indication: PRODUCT USED FOR UNKNOWN INDICATION
     Route: 042
  13. TRAZODONE HYDROCHLORIDE [Concomitant]
     Indication: PRODUCT USED FOR UNKNOWN INDICATION
     Dosage: UNK, PRN
     Route: 048
  14. BENADRYL [Suspect]
     Indication: PRURITUS
  15. RIFADIN [Concomitant]
     Indication: PRODUCT USED FOR UNKNOWN INDICATION
     Route: 048
  16. BANOPHEN ALLERGY [Concomitant]
     Indication: PRODUCT USED FOR UNKNOWN INDICATION
     Route: 048
  17. DEXTROSE [Concomitant]
     Indication: PRODUCT USED FOR UNKNOWN INDICATION
     Dosage: UNK, PRN
     Route: 042
  18. DEXTROSE  GLUCOSE 15 [Concomitant]
     Indication: PRODUCT USED FOR UNKNOWN INDICATION
     Route: 048
  19. DEXTROSE GLUCOSE 15 [Concomitant]
     Indication: PRODUCT USED FOR UNKNOWN INDICATION
     Route: 048
  20. MAG AL PLUS [Concomitant]
     Indication: PRODUCT USED FOR UNKNOWN INDICATION
     Dosage: UNK, PRN
     Route: 048
  21. MOTRIN [Concomitant]
     Indication: PRODUCT USED FOR UNKNOWN INDICATION
     Route: 048
  22. QUESTRAN [Concomitant]
     Indication: DIARRHOEA
     Dosage: UNK, PRN
     Route: 048

REACTIONS (8)
  - Death [Fatal]
  - Pancreatic neuroendocrine tumour [Unknown]
  - Hepatic cancer metastatic [Unknown]
  - Lung cancer metastatic [Unknown]
  - Renal failure acute [Unknown]
  - Metabolic acidosis [Unknown]
  - Azotaemia [Unknown]
  - Drug ineffective [Not Recovered/Not Resolved]
